FAERS Safety Report 9188040 (Version 1)
Quarter: 2013Q1

REPORT INFORMATION
  Report Type: Report from Study
  Country: JP (occurrence: JP)
  Receive Date: 20130325
  Receipt Date: 20130325
  Transmission Date: 20140127
  Serious: Yes (Hospitalization, Disabling)
  Sender: FDA-Public Use
  Company Number: JP-GLAXOSMITHKLINE-B0658866A

PATIENT
  Age: 2 Year
  Sex: Female
  Weight: 12 kg

DRUGS (10)
  1. LAMICTAL [Suspect]
     Indication: EPILEPSY
     Dosage: 2MG ALTERNATE DAYS
     Route: 048
     Dates: start: 20100209, end: 20100222
  2. LAMICTAL [Suspect]
     Indication: EPILEPSY
     Dosage: 2MG PER DAY
     Route: 048
     Dates: start: 20100223, end: 20100308
  3. LAMICTAL [Suspect]
     Indication: EPILEPSY
     Dosage: 5MG PER DAY
     Route: 048
     Dates: start: 20100309, end: 20100323
  4. LAMICTAL [Suspect]
     Indication: EPILEPSY
     Dosage: 4MG TWICE PER DAY
     Route: 048
     Dates: start: 20100324, end: 20100405
  5. LAMICTAL [Suspect]
     Indication: EPILEPSY
     Dosage: 5.5MG TWICE PER DAY
     Route: 048
     Dates: start: 20100406, end: 20100419
  6. LAMICTAL [Suspect]
     Indication: EPILEPSY
     Dosage: 7MG TWICE PER DAY
     Route: 048
     Dates: start: 20100420, end: 20100421
  7. SELENICA-R [Concomitant]
     Indication: EPILEPSY
     Dosage: 150MG TWICE PER DAY
     Route: 048
     Dates: start: 20090604
  8. MYSTAN [Concomitant]
     Indication: EPILEPSY
     Dosage: 1.6MG TWICE PER DAY
     Route: 048
     Dates: start: 20081208
  9. TOPINA [Concomitant]
     Indication: EPILEPSY
     Route: 048
     Dates: start: 20090812
  10. ZOVIRAX [Concomitant]
     Indication: EPILEPSY
     Route: 048

REACTIONS (2)
  - Encephalopathy [Recovered/Resolved with Sequelae]
  - Status epilepticus [Unknown]
